FAERS Safety Report 4709767-6 (Version None)
Quarter: 2005Q3

REPORT INFORMATION
  Report Type: 
  Country: None (occurrence: None)
  Receive Date: 20050707
  Receipt Date: 20050621
  Transmission Date: 20060218
  Serious: Yes (Other)
  Sender: FDA-Public Use
  Company Number: USA050599022

PATIENT
  Age: 71 Year
  Sex: Female
  Weight: 50 kg

DRUGS (10)
  1. FORTEO [Suspect]
     Dosage: 20 UG
     Dates: start: 20050523, end: 20050523
  2. SYNTHROID [Concomitant]
  3. LOTENSIN [Concomitant]
  4. TRICOR [Concomitant]
  5. LOPID [Concomitant]
  6. IRON [Concomitant]
  7. ZELNORM [Concomitant]
  8. LEXAPRO [Concomitant]
  9. PREVACID [Concomitant]
  10. PEPCID [Concomitant]

REACTIONS (2)
  - BACK PAIN [None]
  - HYPERSENSITIVITY [None]
